FAERS Safety Report 10020926 (Version 2)
Quarter: 2014Q1

REPORT INFORMATION
  Report Type: Spontaneous
  Country: IT (occurrence: IT)
  Receive Date: 20140319
  Receipt Date: 20140319
  Transmission Date: 20141002
  Serious: Yes (Other)
  Sender: FDA-Public Use
  Company Number: IT-MYLANLABS-115AS20130495

PATIENT
  Age: 49 Year
  Sex: Female
  Weight: 65 kg

DRUGS (2)
  1. FLUOXETINE HYDROCHLORIDE [Suspect]
     Indication: ANXIETY
     Dosage: 20 MG DAILY
     Route: 048
     Dates: start: 20131101, end: 20131119
  2. FLUOXETINE HYDROCHLORIDE [Suspect]
     Indication: OFF LABEL USE
     Dosage: 20 MG DAILY
     Route: 048
     Dates: start: 20131101, end: 20131119

REACTIONS (4)
  - Anxiety [Unknown]
  - Insomnia [Unknown]
  - Decreased appetite [Unknown]
  - Off label use [Unknown]
